FAERS Safety Report 6854284-0 (Version None)
Quarter: 2010Q3

REPORT INFORMATION
  Report Type: 
  Country: None (occurrence: None)
  Receive Date: 20100717
  Receipt Date: 20080102
  Transmission Date: 20110219
  Serious: No
  Sender: FDA-Public Use
  Company Number: US-PFIZER INC-2008001317

PATIENT
  Sex: Male
  Weight: 104.5 kg

DRUGS (6)
  1. CHANTIX [Suspect]
     Indication: SMOKING CESSATION THERAPY
     Dates: start: 20071001, end: 20071101
  2. COREG [Concomitant]
  3. LANOXIN [Concomitant]
  4. NORVASC [Concomitant]
  5. ACCUPRIL [Concomitant]
     Indication: HYPERTENSION
  6. IMDUR [Concomitant]

REACTIONS (1)
  - DEPRESSION [None]
